FAERS Safety Report 16791234 (Version 1)
Quarter: 2019Q4

REPORT INFORMATION
  Report Type: Spontaneous
  Country: US (occurrence: US)
  Receive Date: 20190909
  Receipt Date: 20190909
  Transmission Date: 20200122
  Serious: Yes (Hospitalization, Other)
  Sender: FDA-Public Use
  Company Number: None

PATIENT
  Age: 83 Year
  Sex: Female

DRUGS (4)
  1. ERTAPENEM. [Suspect]
     Active Substance: ERTAPENEM SODIUM
     Indication: DEVICE RELATED INFECTION
     Route: 042
     Dates: start: 20190906, end: 20190907
  2. EZ PUMP [Suspect]
     Active Substance: DEVICE
  3. ERTAPENEM. [Suspect]
     Active Substance: ERTAPENEM SODIUM
     Indication: MEDICAL DEVICE SITE JOINT INFECTION
     Route: 042
     Dates: start: 20190906, end: 20190907
  4. SODIUM CHLORIDE 0.9% [Concomitant]
     Active Substance: SODIUM CHLORIDE
     Dates: start: 20190906, end: 20190907

REACTIONS (1)
  - Visual impairment [None]

NARRATIVE: CASE EVENT DATE: 20190906
